FAERS Safety Report 7038063-X (Version None)
Quarter: 2010Q4

REPORT INFORMATION
  Report Type: 
  Country: None (occurrence: None)
  Receive Date: 20101011
  Receipt Date: 20101005
  Transmission Date: 20110411
  Serious: Yes (Other)
  Sender: FDA-Public Use
  Company Number: CA-PFIZER INC-2010126705

PATIENT
  Age: 81 Year
  Sex: Male

DRUGS (3)
  1. LIPITOR [Suspect]
     Dosage: 20 MG, 1X/DAY
     Dates: start: 20020101
  2. EZETROL [Concomitant]
     Dosage: 10 MG, 1X/DAY
     Dates: start: 20050101
  3. SECTRAL [Concomitant]
     Dosage: 200 MG, 1X/DAY
     Dates: start: 20020101

REACTIONS (2)
  - BLOOD AMYLASE INCREASED [None]
  - LIPASE INCREASED [None]
